FAERS Safety Report 15370569 (Version 3)
Quarter: 2022Q2

REPORT INFORMATION
  Report Type: Spontaneous
  Country: US (occurrence: US)
  Receive Date: 20180911
  Receipt Date: 20220419
  Transmission Date: 20220721
  Serious: Yes (Other)
  Sender: FDA-Public Use
  Company Number: US-TEVA-2018-US-952574

PATIENT
  Age: 7 Year
  Sex: Male

DRUGS (10)
  1. DOXORUBICIN [Suspect]
     Active Substance: DOXORUBICIN
     Indication: Hodgkin^s disease
     Dosage: ON DAYS 1 AND 15
     Route: 042
  2. METHOTREXATE [Suspect]
     Active Substance: METHOTREXATE
     Indication: Hodgkin^s disease
     Dosage: 3 G/M2 , ON DAYS 1 AND 15
     Route: 042
  3. PREDNISONE [Suspect]
     Active Substance: PREDNISONE
     Indication: Hodgkin^s disease
     Dosage: 40 MG/M2 DAILY; DAYS 1-14
     Route: 048
  4. VINCRISTINE [Suspect]
     Active Substance: VINCRISTINE
     Indication: Hodgkin^s disease
     Dosage: ON DAYS 1 AND 8
     Route: 042
  5. IFOSFAMIDE [Suspect]
     Active Substance: IFOSFAMIDE
     Indication: Bone marrow disorder
     Dosage: ON DAYS 1-3
     Route: 042
  6. CARBOPLATIN [Suspect]
     Active Substance: CARBOPLATIN
     Indication: Bone marrow disorder
     Dosage: ON DAYS 1
     Route: 042
  7. ETOPOSIDE [Suspect]
     Active Substance: ETOPOSIDE
     Indication: Bone marrow disorder
     Dosage: ON DAYS 1-3
     Route: 042
  8. CYCLOPHOSPHAMIDE [Suspect]
     Active Substance: CYCLOPHOSPHAMIDE
     Indication: Hodgkin^s disease
     Dosage: ON DAYS 1 AND 8
     Route: 042
  9. VINBLASTINE [Suspect]
     Active Substance: VINBLASTINE
     Indication: Hodgkin^s disease
     Dosage: ON DAYS 1 AND 15
     Route: 042
  10. PROCARBAZINE [Suspect]
     Active Substance: PROCARBAZINE
     Indication: Hodgkin^s disease
     Dosage: ON DAYS 1-14
     Route: 048

REACTIONS (7)
  - Febrile neutropenia [Unknown]
  - Myelosuppression [Unknown]
  - Splenic infection fungal [Unknown]
  - Neutropenia [Unknown]
  - Cholecystitis [Unknown]
  - Ataxia [Unknown]
  - Vomiting [Unknown]
